FAERS Safety Report 6876624-9 (Version None)
Quarter: 2010Q3

REPORT INFORMATION
  Report Type: 
  Country: None (occurrence: None)
  Receive Date: 20100727
  Receipt Date: 20100713
  Transmission Date: 20110219
  Serious: Yes (Hospitalization)
  Sender: FDA-Public Use
  Company Number: FR-MYLANLABS-2010S1012354

PATIENT
  Age: 75 Year
  Sex: Male

DRUGS (10)
  1. CELIPROLOL [Suspect]
     Indication: PRODUCT USED FOR UNKNOWN INDICATION
     Route: 048
     Dates: start: 20091201, end: 20100201
  2. METFORMIN HCL [Suspect]
     Dates: start: 20030301
  3. GLIPIZIDE [Suspect]
     Dates: start: 20060308
  4. PERMIXON [Suspect]
     Dates: start: 20080101
  5. COKENZEN [Suspect]
     Indication: PRODUCT USED FOR UNKNOWN INDICATION
     Route: 048
     Dates: start: 20090701
  6. ZOCOR [Suspect]
     Indication: PRODUCT USED FOR UNKNOWN INDICATION
     Route: 048
     Dates: start: 20020101, end: 20100203
  7. KARDEGIC [Suspect]
     Dates: start: 20020101
  8. APROVEL [Concomitant]
     Dates: start: 20060308, end: 20090701
  9. BISOPROLOL FUMARATE [Concomitant]
     Dates: start: 20020101
  10. OMEPRAZOLE [Concomitant]
     Dates: start: 20060419, end: 20091201

REACTIONS (2)
  - INTERSTITIAL LUNG DISEASE [None]
  - PULMONARY FIBROSIS [None]
